FAERS Safety Report 13087127 (Version 2)
Quarter: 2017Q1

REPORT INFORMATION
  Report Type: Spontaneous
  Country: GB (occurrence: GB)
  Receive Date: 20170105
  Receipt Date: 20170110
  Transmission Date: 20170428
  Serious: Yes (Hospitalization, Other)
  Sender: FDA-Public Use
  Company Number: GB-ORION CORPORATION ORION PHARMA-TREX2017-0025

PATIENT
  Age: 58 Year
  Sex: Female

DRUGS (17)
  1. DOCUSATE [Concomitant]
     Active Substance: DOCUSATE
     Route: 065
  2. METHOTREXATE (TRADE NAME UNKNOWN) [Suspect]
     Active Substance: METHOTREXATE
     Indication: NEUROSARCOIDOSIS
     Route: 048
     Dates: start: 201610, end: 201611
  3. ADCAL-D3 [Concomitant]
     Active Substance: CALCIUM CARBONATE\CHOLECALCIFEROL
     Route: 065
  4. PARACETAMOL [Concomitant]
     Active Substance: ACETAMINOPHEN
     Route: 065
  5. PREDNISOLONE. [Concomitant]
     Active Substance: PREDNISOLONE
     Route: 065
  6. LAXIDO [Concomitant]
     Active Substance: POLYETHYLENE GLYCOL 3350\POTASSIUM CHLORIDE\SODIUM BICARBONATE\SODIUM CHLORIDE
     Route: 065
  7. MORPHINE [Concomitant]
     Active Substance: MORPHINE
     Route: 065
  8. NAPROXEN. [Concomitant]
     Active Substance: NAPROXEN
     Route: 065
  9. VENLAFAXINE [Concomitant]
     Active Substance: VENLAFAXINE HYDROCHLORIDE
     Route: 065
  10. ALENDRONATE SODIUM. [Concomitant]
     Active Substance: ALENDRONATE SODIUM
     Route: 065
  11. FERROUS SULFATE. [Concomitant]
     Active Substance: FERROUS SULFATE
     Route: 065
  12. FOLIC ACID. [Concomitant]
     Active Substance: FOLIC ACID
     Route: 065
  13. OXYCODONE [Concomitant]
     Active Substance: OXYCODONE
     Route: 065
  14. CYCLIZINE [Concomitant]
     Active Substance: CYCLIZINE
     Route: 065
  15. LANSOPRAZOLE. [Concomitant]
     Active Substance: LANSOPRAZOLE
     Route: 065
  16. DOXYCYCLINE. [Concomitant]
     Active Substance: DOXYCYCLINE
     Indication: LOWER RESPIRATORY TRACT INFECTION
     Route: 065
  17. GABAPENTIN. [Concomitant]
     Active Substance: GABAPENTIN
     Route: 065

REACTIONS (4)
  - Respiratory failure [Unknown]
  - Acute respiratory distress syndrome [Unknown]
  - Pneumonitis [Recovering/Resolving]
  - Lower respiratory tract infection [Unknown]

NARRATIVE: CASE EVENT DATE: 20161116
